FAERS Safety Report 10506067 (Version 1)
Quarter: 2014Q4

REPORT INFORMATION
  Report Type: Report from Study
  Country: BR (occurrence: BR)
  Receive Date: 20141008
  Receipt Date: 20141008
  Transmission Date: 20150528
  Serious: Yes (Life-Threatening, Other)
  Sender: FDA-Public Use
  Company Number: PHHY2014BR130795

PATIENT
  Sex: Female

DRUGS (5)
  1. EXELON [Suspect]
     Active Substance: RIVASTIGMINE TARTRATE
     Dosage: 10 MG, UNK
     Route: 065
  2. OMEPRAZOL//OMEPRAZOLE [Concomitant]
     Indication: GASTRIC DISORDER
     Dosage: 1 DF, QD (IN FASTING)
     Route: 065
  3. LEVOID [Concomitant]
     Active Substance: LEVOTHYROXINE
     Indication: THYROIDECTOMY
     Dosage: 1 DF, QHS
     Route: 065
  4. LIPITOR [Concomitant]
     Active Substance: ATORVASTATIN CALCIUM
     Indication: THYROIDECTOMY
     Dosage: UNK UKN, QHS
     Route: 065
  5. EXELON [Suspect]
     Active Substance: RIVASTIGMINE TARTRATE
     Indication: VASCULAR DEMENTIA
     Dosage: 1 DF, QHS (0.5MG)
     Route: 065
     Dates: start: 201302

REACTIONS (11)
  - Nausea [Unknown]
  - Weight decreased [Unknown]
  - Feeling abnormal [Unknown]
  - Feeling of despair [Recovering/Resolving]
  - Palpitations [Recovered/Resolved]
  - Memory impairment [Unknown]
  - Gait disturbance [Unknown]
  - Malaise [Unknown]
  - Apparent death [Recovering/Resolving]
  - Muscle spasms [Recovering/Resolving]
  - Insomnia [Unknown]
